FAERS Safety Report 6379455-1 (Version None)
Quarter: 2009Q3

REPORT INFORMATION
  Report Type: 
  Country: None (occurrence: None)
  Receive Date: 20090923
  Receipt Date: 20090923
  Transmission Date: 20100115
  Serious: Yes (Life-Threatening, Hospitalization, Other)
  Sender: FDA-Public Use
  Company Number: None

PATIENT
  Age: 54 Year
  Sex: Female
  Weight: 125.6464 kg

DRUGS (2)
  1. OSCAL D 500 MGS. MAJOR PHARMACEUTICALS [Suspect]
     Indication: LACTOSE INTOLERANCE
     Dosage: 500 MGS. 3 X A DAY PO
     Route: 048
     Dates: start: 20030901, end: 20090916
  2. OSCAL D 500 MGS. MAJOR PHARMACEUTICALS [Suspect]
     Indication: MENOPAUSE
     Dosage: 500 MGS. 3 X A DAY PO
     Route: 048
     Dates: start: 20030901, end: 20090916

REACTIONS (1)
  - URINARY TRACT INFECTION [None]
